FAERS Safety Report 9298295 (Version 1)
Quarter: 2013Q2

REPORT INFORMATION
  Report Type: Spontaneous
  Country: US (occurrence: US)
  Receive Date: 20130520
  Receipt Date: 20130520
  Transmission Date: 20140414
  Serious: Yes (Death, Hospitalization, Other)
  Sender: FDA-Public Use
  Company Number: US-JNJFOC-20130508483

PATIENT
  Sex: Male

DRUGS (1)
  1. XARELTO [Suspect]
     Indication: THROMBOSIS IN DEVICE
     Route: 048

REACTIONS (4)
  - Cardio-respiratory arrest [Fatal]
  - Epistaxis [Recovered/Resolved]
  - Local swelling [Unknown]
  - Circulatory collapse [Unknown]
